FAERS Safety Report 5094972-2 (Version None)
Quarter: 2006Q3

REPORT INFORMATION
  Report Type: 
  Country: None (occurrence: None)
  Receive Date: 20060901
  Receipt Date: 19980408
  Transmission Date: 20061208
  Serious: Yes (Death, Other)
  Sender: FDA-Public Use
  Company Number: GB-BAYER-1199811423

PATIENT
  Age: 34 Year
  Sex: Female

DRUGS (7)
  1. APROTININ [Suspect]
     Indication: ACUTE PROMYELOCYTIC LEUKAEMIA
     Route: 065
  2. TRETINOIN [Suspect]
     Indication: ACUTE PROMYELOCYTIC LEUKAEMIA
     Route: 065
  3. DAUNORUBICIN HCL [Concomitant]
     Indication: ACUTE PROMYELOCYTIC LEUKAEMIA
     Route: 065
  4. CYTARABINE [Concomitant]
     Indication: ACUTE PROMYELOCYTIC LEUKAEMIA
     Route: 065
  5. THIOGUANINE [Concomitant]
     Indication: ACUTE PROMYELOCYTIC LEUKAEMIA
     Route: 065
  6. HUMAN PLASMA PROTEIN [Concomitant]
     Indication: ACUTE PROMYELOCYTIC LEUKAEMIA
     Route: 065
  7. MANNITOL [Concomitant]
     Indication: ACUTE PROMYELOCYTIC LEUKAEMIA
     Route: 065

REACTIONS (8)
  - CEREBRAL INFARCTION [None]
  - EMBOLISM [None]
  - HAEMODIALYSIS [None]
  - HEPATIC INFARCTION [None]
  - RENAL CORTICAL NECROSIS [None]
  - RENAL FAILURE [None]
  - RESPIRATORY FAILURE [None]
  - SPLENIC INFARCTION [None]
